FAERS Safety Report 8272989-4 (Version None)
Quarter: 2012Q2

REPORT INFORMATION
  Report Type: 
  Country: None (occurrence: None)
  Receive Date: 20120411
  Receipt Date: 20120330
  Transmission Date: 20120825
  Serious: Yes (Hospitalization)
  Sender: FDA-Public Use
  Company Number: US-JNJFOC-20120305986

PATIENT
  Sex: Female
  Weight: 56.1 kg

DRUGS (5)
  1. INFLIXIMAB, RECOMBINANT [Suspect]
     Indication: INFLAMMATORY BOWEL DISEASE
     Dosage: DISCONTINUED PRIOR TO STUDY ENROLLMENT
     Route: 042
     Dates: start: 20090923
  2. CELEXA [Concomitant]
  3. SEROQUEL [Concomitant]
  4. METHOTREXATE [Concomitant]
     Indication: INFLAMMATORY BOWEL DISEASE
  5. HUMIRA [Concomitant]
     Indication: INFLAMMATORY BOWEL DISEASE
     Dates: start: 20100528

REACTIONS (1)
  - CHOLECYSTITIS [None]
